FAERS Safety Report 21567802 (Version 2)
Quarter: 2022Q4

REPORT INFORMATION
  Report Type: Spontaneous
  Country: JP (occurrence: JP)
  Receive Date: 20221108
  Receipt Date: 20221117
  Transmission Date: 20230113
  Serious: Yes (Other)
  Sender: FDA-Public Use
  Company Number: JP-BAXTER-2022BAX023572

PATIENT
  Age: 66 Year
  Sex: Male

DRUGS (5)
  1. SUPRANE [Suspect]
     Active Substance: DESFLURANE
  2. PROPOFOL [Concomitant]
     Active Substance: PROPOFOL
     Route: 065
  3. REMIFENTANIL [Concomitant]
     Active Substance: REMIFENTANIL
     Route: 065
  4. ROCURONIUM BROMIDE [Concomitant]
     Active Substance: ROCURONIUM BROMIDE
     Route: 065
  5. NOREPINEPHRINE [Concomitant]
     Active Substance: NOREPINEPHRINE
     Route: 065

REACTIONS (1)
  - Posterior reversible encephalopathy syndrome [Unknown]
